FAERS Safety Report 4358299-6 (Version None)
Quarter: 2004Q2

REPORT INFORMATION
  Report Type: 
  Country: None (occurrence: None)
  Receive Date: 20040511
  Receipt Date: 20040429
  Transmission Date: 20050107
  Serious: Yes (Hospitalization)
  Sender: FDA-Public Use
  Company Number: US-JNJFOC-20030904536

PATIENT
  Age: 84 Year
  Sex: Male
  Weight: 60.3284 kg

DRUGS (16)
  1. REMICADE [Suspect]
     Indication: RHEUMATOID ARTHRITIS
     Dosage: SEE IMAGE
     Route: 042
     Dates: start: 20020101
  2. REMICADE [Suspect]
     Indication: RHEUMATOID ARTHRITIS
     Dosage: SEE IMAGE
     Route: 042
     Dates: start: 20030416
  3. REMICADE [Suspect]
     Indication: RHEUMATOID ARTHRITIS
     Dosage: SEE IMAGE
     Route: 042
     Dates: start: 20030430
  4. REMICADE [Suspect]
     Indication: RHEUMATOID ARTHRITIS
     Dosage: SEE IMAGE
     Route: 042
     Dates: start: 20030528
  5. REMICADE [Suspect]
     Indication: RHEUMATOID ARTHRITIS
     Dosage: SEE IMAGE
     Route: 042
     Dates: start: 20030601
  6. COUMADIN (WARFARIN SODIUIM) [Concomitant]
  7. ACTOS (PIOGLITAZONE) [Concomitant]
  8. GLUCOTROL [Concomitant]
  9. PREDNISONE [Concomitant]
  10. METHOTREXATE [Concomitant]
  11. ALTACE [Concomitant]
  12. LIPITOR [Concomitant]
  13. CELEBREX [Concomitant]
  14. DIGOXIN [Concomitant]
  15. PROSCAR (FINSTERIDE) [Concomitant]
  16. INSULIN [Concomitant]

REACTIONS (19)
  - ARTHRITIS INFECTIVE [None]
  - BENIGN PROSTATIC HYPERPLASIA [None]
  - CELLULITIS [None]
  - CONDITION AGGRAVATED [None]
  - DIARRHOEA [None]
  - INFLAMMATION [None]
  - LUNG DISORDER [None]
  - LUNG INFILTRATION [None]
  - NAUSEA [None]
  - OBLITERATIVE BRONCHIOLITIS [None]
  - PNEUMONITIS [None]
  - PULMONARY FIBROSIS [None]
  - RESPIRATORY FAILURE [None]
  - RHEUMATOID ARTHRITIS [None]
  - STAPHYLOCOCCAL INFECTION [None]
  - SYNOVITIS [None]
  - URINARY RETENTION [None]
  - VIRAL INFECTION [None]
  - VOMITING [None]
